FAERS Safety Report 22658117 (Version 3)
Quarter: 2023Q4

REPORT INFORMATION
  Report Type: Spontaneous
  Country: CA (occurrence: CA)
  Receive Date: 20230630
  Receipt Date: 20231201
  Transmission Date: 20240110
  Serious: Yes (Hospitalization, Other)
  Sender: FDA-Public Use
  Company Number: CA-CELLTRION INC.-2022CA019517

PATIENT

DRUGS (16)
  1. ADALIMUMAB [Suspect]
     Active Substance: ADALIMUMAB\ISOPROPYL ALCOHOL
     Indication: Crohn^s disease
     Dosage: 1 DF, 2 DOSES - BRAND UNKNOWN - DISCONTINUED
     Route: 065
     Dates: start: 2022, end: 2022
  2. ADALIMUMAB [Suspect]
     Active Substance: ADALIMUMAB\ISOPROPYL ALCOHOL
     Indication: Crohn^s disease
  3. INFLECTRA [Suspect]
     Active Substance: INFLIXIMAB-DYYB
     Indication: Crohn^s disease
     Dosage: 10 MILLIGRAM/KILOGRAM, 1/WEEK, 10 MG/KG 3 INDUCTION DOSES - ONCE A WEEK FREQUENCY AT HOSPITAL
     Route: 042
     Dates: start: 20220402, end: 20220415
  4. INFLECTRA [Suspect]
     Active Substance: INFLIXIMAB-DYYB
     Indication: Crohn^s disease
     Dosage: 10 MILLIGRAM/KILOGRAM, 1/WEEK, 10 MG/KG 3 INDUCTION DOSES - ONCE A WEEK FREQUENCY AT HOSPITAL
     Route: 042
     Dates: start: 20220408
  5. INFLECTRA [Suspect]
     Active Substance: INFLIXIMAB-DYYB
     Dosage: 10 MILLIGRAM/KILOGRAM, 1/WEEK, 10 MG/KG 3 INDUCTION DOSES - ONCE A WEEK FREQUENCY AT HOSPITAL
     Route: 042
     Dates: start: 20220415
  6. INFLECTRA [Suspect]
     Active Substance: INFLIXIMAB-DYYB
     Dosage: 700 MG, (PATIENT IS SUPPOSED TO RECEIVE 10 MG/KG, EVERY 4 WEEK/1 EVERY 1 MONTH
     Route: 042
     Dates: start: 20220517
  7. INFLECTRA [Suspect]
     Active Substance: INFLIXIMAB-DYYB
     Dosage: 10 MG/KG, EVERY 4 WEEKS/1 EVERY 1 MONTH
     Route: 042
     Dates: start: 20220517
  8. INFLECTRA [Suspect]
     Active Substance: INFLIXIMAB-DYYB
     Dosage: 10 MG/KG, EVERY 4 WEEKS/1 EVERY 1 MONTH
     Route: 042
     Dates: start: 20220709
  9. INFLECTRA [Suspect]
     Active Substance: INFLIXIMAB-DYYB
     Dosage: 10 MG/KG, EVERY 4 WEEKS/1 EVERY 1 MONTH
     Route: 042
     Dates: start: 20220909
  10. INFLECTRA [Suspect]
     Active Substance: INFLIXIMAB-DYYB
     Dosage: 10 MG/KG, EVERY 4 WEEKS/1 EVERY 1 MONTH
     Route: 042
     Dates: start: 20221104
  11. INFLECTRA [Suspect]
     Active Substance: INFLIXIMAB-DYYB
     Dosage: 10 MG/KG, EVERY 4 WEEKS/1 EVERY 1 MONTH
     Route: 042
     Dates: start: 20230206
  12. INFLECTRA [Suspect]
     Active Substance: INFLIXIMAB-DYYB
     Dosage: 790MG, AFTER 9 WEEKS
     Route: 042
     Dates: start: 20230410
  13. INFLECTRA [Suspect]
     Active Substance: INFLIXIMAB-DYYB
     Dosage: 790MG, AFTER 9 WEEKS
     Route: 042
     Dates: start: 20230410
  14. INFLECTRA [Suspect]
     Active Substance: INFLIXIMAB-DYYB
     Dosage: 800 MG, 5 WEEKS AND 3 DAYS
     Route: 042
     Dates: start: 20230612
  15. INFLECTRA [Suspect]
     Active Substance: INFLIXIMAB-DYYB
     Indication: Crohn^s disease
     Dosage: 10 MG/KG, 1 EVERY 1 WEEK
     Route: 042
  16. PREDNISONE [Concomitant]
     Active Substance: PREDNISONE
     Dosage: 1 DF, DOSAGE NOT AVAILABLE
     Route: 065
     Dates: start: 20220404

REACTIONS (5)
  - Anal fistula [Unknown]
  - Colitis [Unknown]
  - Clostridium difficile infection [Unknown]
  - Listeriosis [Unknown]
  - Thrombophlebitis [Unknown]

NARRATIVE: CASE EVENT DATE: 20220401
